FAERS Safety Report 6900629-2 (Version None)
Quarter: 2010Q3

REPORT INFORMATION
  Report Type: 
  Country: None (occurrence: None)
  Receive Date: 20100803
  Receipt Date: 20100730
  Transmission Date: 20110219
  Serious: Yes (Death)
  Sender: FDA-Public Use
  Company Number: US-ASTRAZENECA-2006UW04662

PATIENT
  Age: 94 Year
  Sex: Female

DRUGS (3)
  1. ARIMIDEX [Suspect]
     Indication: BREAST CANCER METASTATIC
     Route: 048
     Dates: start: 20051201, end: 20060101
  2. ARIMIDEX [Suspect]
     Route: 048
     Dates: start: 20060329
  3. FEMARA [Suspect]

REACTIONS (6)
  - ABDOMINAL PAIN [None]
  - ADVERSE DRUG REACTION [None]
  - DEATH [None]
  - DRY SKIN [None]
  - DYSPNOEA [None]
  - OEDEMA PERIPHERAL [None]
